FAERS Safety Report 7944228-2 (Version None)
Quarter: 2011Q4

REPORT INFORMATION
  Report Type: 
  Country: None (occurrence: None)
  Receive Date: 20111129
  Receipt Date: 20111118
  Transmission Date: 20120403
  Serious: Yes (Hospitalization)
  Sender: FDA-Public Use
  Company Number: FR-BIOGENIDEC-2011BI044332

PATIENT
  Age: 55 Year
  Sex: Female

DRUGS (2)
  1. CONCOMITANT TREATMENT [Concomitant]
  2. AVONEX [Suspect]
     Indication: MULTIPLE SCLEROSIS
     Route: 030
     Dates: start: 20110126, end: 20110214

REACTIONS (3)
  - MANIA [None]
  - AGITATION [None]
  - ABNORMAL BEHAVIOUR [None]
